FAERS Safety Report 25166948 (Version 1)
Quarter: 2025Q2

REPORT INFORMATION
  Report Type: Report from Study
  Country: US (occurrence: US)
  Receive Date: 20250407
  Receipt Date: 20250407
  Transmission Date: 20250717
  Serious: Yes (Hospitalization, Other)
  Sender: ALEXION PHARMACEUTICALS
  Company Number: US-AstraZeneca-CH-00839928A

PATIENT

DRUGS (1)
  1. CAPIVASERTIB [Suspect]
     Active Substance: CAPIVASERTIB
     Indication: Breast cancer female
     Dosage: 400 MILLIGRAM, BID

REACTIONS (7)
  - Chest pain [Unknown]
  - Sepsis [Unknown]
  - Pneumonia [Unknown]
  - Oedema peripheral [Unknown]
  - Localised oedema [Unknown]
  - Adverse event [Unknown]
  - Abdominal pain [Unknown]
